FAERS Safety Report 20066586 (Version 6)
Quarter: 2023Q2

REPORT INFORMATION
  Report Type: Other
  Country: DE (occurrence: None)
  Receive Date: 20211115
  Receipt Date: 20230403
  Transmission Date: 20230722
  Serious: Yes (Hospitalization)
  Sender: FDA-Public Use
  Company Number: DE-ROCHE-2171225

PATIENT
  Age: 27 Year
  Sex: Female

DRUGS (11)
  1. OCREVUS [Suspect]
     Active Substance: OCRELIZUMAB
     Indication: Relapsing-remitting multiple sclerosis
     Route: 042
     Dates: start: 20180813
  2. OCREVUS [Suspect]
     Active Substance: OCRELIZUMAB
     Route: 042
     Dates: start: 20190819
  3. OCREVUS [Suspect]
     Active Substance: OCRELIZUMAB
     Route: 042
     Dates: start: 20200211
  4. OCREVUS [Suspect]
     Active Substance: OCRELIZUMAB
     Route: 042
     Dates: start: 20200213
  5. OCREVUS [Suspect]
     Active Substance: OCRELIZUMAB
     Route: 042
     Dates: start: 20210226
  6. OCREVUS [Suspect]
     Active Substance: OCRELIZUMAB
     Route: 042
     Dates: start: 20210804
  7. SODIUM PROPIONATE [Suspect]
     Active Substance: SODIUM PROPIONATE
     Indication: Product used for unknown indication
     Dosage: IN THE EVENING
     Route: 065
  8. ENOXAPARIN SODIUM [Concomitant]
     Active Substance: ENOXAPARIN SODIUM
     Dosage: 40MG/0.4ML
  9. PANTOPRAZOLE SODIUM [Concomitant]
     Active Substance: PANTOPRAZOLE SODIUM
  10. CALCIUM [Concomitant]
     Active Substance: CALCIUM
  11. TILIDINE [Concomitant]
     Active Substance: TILIDINE
     Dosage: AS REQUIRED

REACTIONS (22)
  - Endometriosis [Recovered/Resolved]
  - Cardiovascular disorder [Recovered/Resolved]
  - Nausea [Recovered/Resolved]
  - Dizziness [Recovered/Resolved]
  - Gait disturbance [Recovered/Resolved]
  - Memory impairment [Recovered/Resolved]
  - Nausea [Recovered/Resolved]
  - Fatigue [Recovered/Resolved]
  - Muscular weakness [Unknown]
  - Dizziness [Recovered/Resolved]
  - Fall [Unknown]
  - Skin abrasion [Recovered/Resolved]
  - Back pain [Recovered/Resolved]
  - Feeling abnormal [Recovered/Resolved]
  - Incorrect dose administered [Unknown]
  - Product administration interrupted [Unknown]
  - Asthenia [Recovered/Resolved]
  - Influenza like illness [Recovered/Resolved]
  - Peroneal nerve palsy [Unknown]
  - COVID-19 [Recovered/Resolved]
  - Gait disturbance [Not Recovered/Not Resolved]
  - Spinal pain [Not Recovered/Not Resolved]

NARRATIVE: CASE EVENT DATE: 20180813
